FAERS Safety Report 11520012 (Version 1)
Quarter: 2015Q3

REPORT INFORMATION
  Report Type: Spontaneous
  Country: US (occurrence: US)
  Receive Date: 20150918
  Receipt Date: 20150918
  Transmission Date: 20151125
  Serious: No
  Sender: FDA-Public Use
  Company Number: US-RB-069292-14

PATIENT

DRUGS (1)
  1. MUCINEX MAXIMUM STRENGTH [Suspect]
     Active Substance: GUAIFENESIN
     Indication: PRODUCT USED FOR UNKNOWN INDICATION
     Dosage: 1200MG. PRODUCT LAST USED ON: 23/SEP/2014; AMOUNT USED: 1 TABLET 1 TIME ONLY.,FREQUENCY UNK
     Route: 065
     Dates: start: 20140923

REACTIONS (2)
  - Unresponsive to stimuli [Recovered/Resolved]
  - Somnolence [Recovered/Resolved]

NARRATIVE: CASE EVENT DATE: 20140923
